FAERS Safety Report 6500462-X (Version None)
Quarter: 2009Q4

REPORT INFORMATION
  Report Type: 
  Country: None (occurrence: None)
  Receive Date: 20091216
  Receipt Date: 20091207
  Transmission Date: 20100525
  Serious: Yes (Other)
  Sender: FDA-Public Use
  Company Number: CN-JNJFOC-20091203401

PATIENT

DRUGS (2)
  1. TOPAMAX [Suspect]
     Indication: EPILEPSY
     Route: 048
     Dates: start: 20091001
  2. CLONAZEPAM [Concomitant]
     Indication: EPILEPSY
     Route: 065

REACTIONS (3)
  - ABNORMAL BEHAVIOUR [None]
  - EYE DISORDER [None]
  - INTENTIONAL DRUG MISUSE [None]
